FAERS Safety Report 10149881 (Version 2)
Quarter: 2014Q2

REPORT INFORMATION
  Report Type: Spontaneous
  Country: JP (occurrence: JP)
  Receive Date: 20140502
  Receipt Date: 20140527
  Transmission Date: 20141212
  Serious: Yes (Hospitalization)
  Sender: FDA-Public Use
  Company Number: JP-ASTRAZENECA-2014SE28883

PATIENT
  Age: 65 Year
  Sex: Male

DRUGS (8)
  1. NEXIUM [Suspect]
     Indication: HELICOBACTER INFECTION
     Route: 048
     Dates: start: 20130927, end: 2013
  2. NEXIUM [Suspect]
     Indication: GASTROOESOPHAGEAL REFLUX DISEASE
     Route: 048
     Dates: start: 20130927, end: 2013
  3. NEXIUM [Suspect]
     Indication: HELICOBACTER INFECTION
     Route: 048
     Dates: start: 2014, end: 20140421
  4. NEXIUM [Suspect]
     Indication: GASTROOESOPHAGEAL REFLUX DISEASE
     Route: 048
     Dates: start: 2014, end: 20140421
  5. SYMBICORT TURBUHALER [Suspect]
     Indication: ASTHMA
     Dosage: 1 PUFF TWO TIMES A DAY
     Route: 055
  6. AGENTS FOR HYPERLIPIDEMIAS [Suspect]
     Indication: HYPERLIPIDAEMIA
     Dosage: DOSE UNKNOWN
     Route: 065
  7. AGENTS FOR TREATMENT OF GOUT [Suspect]
     Indication: HYPERURICAEMIA
     Dosage: DOSE UNKNOWN
     Route: 065
  8. LANSAP [Concomitant]
     Indication: HELICOBACTER INFECTION
     Dosage: DOSE UNKNOWN
     Route: 065
     Dates: start: 20131225, end: 20140328

REACTIONS (1)
  - Thrombocytopenia [Unknown]
